FAERS Safety Report 26103490 (Version 1)
Quarter: 2025Q4

REPORT INFORMATION
  Report Type: Spontaneous
  Country: EU (occurrence: EU)
  Receive Date: 20251129
  Receipt Date: 20251129
  Transmission Date: 20260117
  Serious: Yes (Life-Threatening, Hospitalization)
  Sender: MACLEODS
  Company Number: EU-MLMSERVICE-20251110-PI705205-00136-1

PATIENT

DRUGS (25)
  1. ESCITALOPRAM [Suspect]
     Active Substance: ESCITALOPRAM OXALATE
     Indication: Product used for unknown indication
     Dosage: 10 MG X 1
     Route: 065
  2. ESCITALOPRAM [Suspect]
     Active Substance: ESCITALOPRAM OXALATE
     Dosage: 10 MG PER OS
     Route: 048
  3. PANTOPRAZOLE [Suspect]
     Active Substance: PANTOPRAZOLE
     Indication: Product used for unknown indication
     Route: 065
  4. VALPROATE SODIUM [Suspect]
     Active Substance: VALPROATE SODIUM
     Indication: Seizure
     Dosage: INFUSION AT 200 MG/HOUR
     Route: 042
  5. VALPROATE SODIUM [Suspect]
     Active Substance: VALPROATE SODIUM
     Dosage: INFUSION AT 200 MG/HOUR
     Route: 042
  6. VALPROATE SODIUM [Suspect]
     Active Substance: VALPROATE SODIUM
     Dosage: INFUSION AT 200 MG/HOUR
     Route: 042
  7. METOCLOPRAMIDE [Suspect]
     Active Substance: METOCLOPRAMIDE
     Indication: Vomiting
     Dosage: TWO DOSES OF 10 MG INTRAVENOUS METOCLOPRAMIDE
     Route: 042
  8. FENTANYL [Suspect]
     Active Substance: FENTANYL
     Indication: Sedation
     Dosage: REDUCED THROUGHOUT THE DAY
     Route: 065
  9. BUPROPION HYDROCHLORIDE\NALTREXONE HYDROCHLORIDE [Suspect]
     Active Substance: BUPROPION HYDROCHLORIDE\NALTREXONE HYDROCHLORIDE
     Indication: Weight control
     Dosage: DOSE OF 360 MG BUPROPION /32 MG NALTREXONE
     Route: 065
  10. METFORMIN [Concomitant]
     Active Substance: METFORMIN HYDROCHLORIDE
     Indication: Product used for unknown indication
     Dosage: 500 MG X 3
     Route: 065
  11. CANDESARTAN [Concomitant]
     Active Substance: CANDESARTAN
     Indication: Product used for unknown indication
     Dosage: 8 MG X 1
     Route: 065
  12. ATORVASTATIN [Concomitant]
     Active Substance: ATORVASTATIN
     Indication: Product used for unknown indication
     Dosage: 40 MG X 1
     Route: 065
  13. BUDESONIDE\FORMOTEROL [Concomitant]
     Active Substance: BUDESONIDE\FORMOTEROL
     Indication: Product used for unknown indication
     Dosage: REGULAR DOSE OF 160/4.5 MICROGRAM X 2
  14. OXAZEPAM [Concomitant]
     Active Substance: OXAZEPAM
     Indication: Product used for unknown indication
     Route: 065
  15. ZOPICLONE [Concomitant]
     Active Substance: ZOPICLONE
     Indication: Product used for unknown indication
     Route: 065
  16. ACETAMINOPHEN [Concomitant]
     Active Substance: ACETAMINOPHEN
     Indication: Product used for unknown indication
     Dosage: AS NECESSARY
     Route: 065
  17. MIDAZOLAM [Concomitant]
     Active Substance: MIDAZOLAM
     Route: 030
  18. MIDAZOLAM [Concomitant]
     Active Substance: MIDAZOLAM
     Route: 030
  19. MIDAZOLAM [Concomitant]
     Active Substance: MIDAZOLAM
     Dosage: 1-3 MG
     Route: 030
  20. PROPOFOL [Concomitant]
     Active Substance: PROPOFOL
     Dosage: 1-3 MG
     Route: 030
  21. REMIFENTANIL [Concomitant]
     Active Substance: REMIFENTANIL
     Dosage: 1-3 MG
     Route: 030
  22. LEVETIRACETAM [Concomitant]
     Active Substance: LEVETIRACETAM
     Dosage: LOADING DOSE
     Route: 065
  23. LEVETIRACETAM [Concomitant]
     Active Substance: LEVETIRACETAM
     Dosage: MAINTENANCE DOSE OF 1,000 MG X 3
     Route: 042
  24. LACOSAMIDE [Concomitant]
     Active Substance: LACOSAMIDE
     Dosage: LOADING DOSE
     Route: 042
  25. LACOSAMIDE [Concomitant]
     Active Substance: LACOSAMIDE
     Dosage: 50 MG X 2 AS A MAINTENANCE DOSE
     Route: 042

REACTIONS (4)
  - Serotonin syndrome [Recovered/Resolved]
  - Status epilepticus [Recovered/Resolved]
  - Drug interaction [Recovered/Resolved]
  - Drug interaction [Recovered/Resolved]
